FAERS Safety Report 4666994-4 (Version None)
Quarter: 2005Q2

REPORT INFORMATION
  Report Type: 
  Country: None (occurrence: None)
  Receive Date: 20050518
  Receipt Date: 20040917
  Transmission Date: 20051028
  Serious: Yes (Other)
  Sender: FDA-Public Use
  Company Number: PHEH2004US10046

PATIENT
  Sex: Male

DRUGS (5)
  1. TEGRETOL-XR [Suspect]
     Indication: CONVULSION
     Dosage: 1200 MG, QD, ORAL
     Route: 048
  2. HYDROCHLOROTHIAZIDE [Concomitant]
     Dosage: ONCE/SINGLE, ORAL
     Route: 048
     Dates: start: 20040911, end: 20040911
  3. SYNTHROID [Concomitant]
  4. SUPER B (AMINO ACID NOS, MINERALS NOS, VITAMINS NOS) [Concomitant]
  5. SODIUM CHLORIDE 0.9% [Concomitant]

REACTIONS (2)
  - BLOOD SODIUM DECREASED [None]
  - EUPHORIC MOOD [None]
